APPROVED DRUG PRODUCT: MEMANTINE HYDROCHLORIDE
Active Ingredient: MEMANTINE HYDROCHLORIDE
Strength: 14MG
Dosage Form/Route: CAPSULE, EXTENDED RELEASE;ORAL
Application: A206310 | Product #002 | TE Code: AB
Applicant: MACLEODS PHARMACEUTICALS LTD
Approved: Aug 28, 2025 | RLD: No | RS: No | Type: RX